FAERS Safety Report 8344867-3 (Version None)
Quarter: 2012Q2

REPORT INFORMATION
  Report Type: 
  Country: None (occurrence: None)
  Receive Date: 20120508
  Receipt Date: 20120501
  Transmission Date: 20120825
  Serious: Yes (Hospitalization)
  Sender: FDA-Public Use
  Company Number: US-GLAXOSMITHKLINE-B0753432A

PATIENT
  Age: 50 Year
  Sex: Female

DRUGS (8)
  1. AVANDIA [Suspect]
     Indication: DIABETES MELLITUS
     Dosage: 8MG PER DAY
     Route: 048
     Dates: start: 20070627, end: 20071201
  2. ASMANEX TWISTHALER [Concomitant]
  3. GLYBURIDE [Concomitant]
  4. AVANDAMET [Suspect]
     Indication: DIABETES MELLITUS
     Route: 048
     Dates: end: 20071201
  5. INSULIN [Concomitant]
  6. CRESTOR [Concomitant]
  7. NASONEX [Concomitant]
  8. STARLIX [Concomitant]
     Dates: end: 20071201

REACTIONS (2)
  - CEREBROVASCULAR ACCIDENT [None]
  - HYPERTENSION [None]
